FAERS Safety Report 6916420-7 (Version None)
Quarter: 2010Q3

REPORT INFORMATION
  Report Type: 
  Country: None (occurrence: None)
  Receive Date: 20100804
  Receipt Date: 20100722
  Transmission Date: 20110219
  Serious: Yes (Hospitalization)
  Sender: FDA-Public Use
  Company Number: 1000015412

PATIENT
  Age: 50 Year
  Sex: Male

DRUGS (7)
  1. ESCITALOPRAM [Suspect]
     Indication: DEPRESSION
     Dosage: 10MG (10MG, 2 IN 2D), ORAL
     Route: 048
  2. PREVISCAN [Suspect]
     Indication: PROPHYLAXIS
     Dosage: 1 DOSAGE FORMS ( 1 DOSAGE FORMS, 1 IN 1D), ORAL
     Route: 048
     Dates: end: 20100407
  3. AOTAL [Concomitant]
  4. DIFFU K [Concomitant]
  5. STILNOX [Concomitant]
  6. SERESTA [Concomitant]
  7. VITAMINE B1 B6 [Concomitant]

REACTIONS (7)
  - ANAEMIA [None]
  - DRUG INTERACTION [None]
  - FALL [None]
  - GAIT DISTURBANCE [None]
  - HAEMATOMA [None]
  - INTERNATIONAL NORMALISED RATIO INCREASED [None]
  - MUSCLE HAEMORRHAGE [None]
